FAERS Safety Report 10418290 (Version 3)
Quarter: 2014Q3

REPORT INFORMATION
  Report Type: Spontaneous
  Country: CH (occurrence: CH)
  Receive Date: 20140829
  Receipt Date: 20140912
  Transmission Date: 20150326
  Serious: Yes (Death)
  Sender: FDA-Public Use
  Company Number: CH-PFIZER INC-2014196828

PATIENT
  Age: 67 Year
  Sex: Male

DRUGS (1)
  1. CAMPTO [Suspect]
     Active Substance: IRINOTECAN
     Indication: GLIOBLASTOMA
     Dosage: 300 MG (180 MG/M2), CYCLIC, EVERY 2 WEEKS

REACTIONS (3)
  - Off label use [Unknown]
  - Disease progression [Fatal]
  - Glioblastoma [Fatal]

NARRATIVE: CASE EVENT DATE: 20140824
